FAERS Safety Report 15325432 (Version 2)
Quarter: 2018Q3

REPORT INFORMATION
  Report Type: Spontaneous
  Country: GB (occurrence: GB)
  Receive Date: 20180828
  Receipt Date: 20180910
  Transmission Date: 20181010
  Serious: Yes (Other)
  Sender: FDA-Public Use
  Company Number: GB-SA-2018SA224613

PATIENT
  Age: 64 Year
  Sex: Female

DRUGS (1)
  1. CLOPIDOGREL ZENTIVA [Suspect]
     Active Substance: CLOPIDOGREL BISULFATE
     Indication: LACUNAR STROKE
     Dosage: 75 MG, QD
     Route: 065
     Dates: start: 2012

REACTIONS (1)
  - Retinal vein occlusion [Unknown]

NARRATIVE: CASE EVENT DATE: 20180711
